FAERS Safety Report 6153408-0 (Version None)
Quarter: 2009Q2

REPORT INFORMATION
  Report Type: 
  Country: None (occurrence: None)
  Receive Date: 20090409
  Receipt Date: 20090409
  Transmission Date: 20091009
  Serious: Yes (Hospitalization)
  Sender: FDA-Public Use
  Company Number: None

PATIENT
  Age: 59 Year
  Sex: Male
  Weight: 109.453 kg

DRUGS (20)
  1. PANITUMUMAB 6.0 MG/ KG;  DOCETAXEL 75MG/M2 [Suspect]
     Indication: HEAD AND NECK CANCER
     Dosage: 580 MG Q3WK IV 12/19/08 - TO PRESENT
     Route: 042
     Dates: start: 20081219
  2. DOCETAXEL [Suspect]
     Indication: HEAD AND NECK CANCER
     Dosage: 75MG/M2 Q 3WK IV, 12/19/08 - PRESENT
     Route: 042
     Dates: start: 20081219
  3. CISPLATIN [Suspect]
     Indication: HEAD AND NECK CANCER
     Dosage: 100MG/M2 IV, 12/19/08 - PRESENT
     Route: 042
     Dates: start: 20081219
  4. FLUOROURACIL [Suspect]
     Indication: HEAD AND NECK CANCER
     Dosage: 800MG/M2 IV 12/19/08 - PRESENT
     Route: 042
     Dates: start: 20081219
  5. ACTIVAN [Concomitant]
  6. DECADRON [Concomitant]
  7. FENTANYL TRANSDERMAL SYSTEM [Concomitant]
  8. ISOSOURCE [Concomitant]
  9. LISINOPRIL [Concomitant]
  10. MAALOX [Concomitant]
  11. BENADRYL [Concomitant]
  12. LIDOCAINE [Concomitant]
  13. MAGNESIUM OXIDE [Concomitant]
  14. METFORMIN HCL [Concomitant]
  15. REGLAN [Concomitant]
  16. ROXICET [Concomitant]
  17. SIMVASTATIN [Concomitant]
  18. TOPROL-XL [Concomitant]
  19. ZEGERID [Concomitant]
  20. ZOFRAN [Concomitant]

REACTIONS (7)
  - CONFUSIONAL STATE [None]
  - DEHYDRATION [None]
  - FATIGUE [None]
  - HYPOPHAGIA [None]
  - IMPAIRED SELF-CARE [None]
  - ORAL PAIN [None]
  - OROPHARYNGEAL PAIN [None]
